FAERS Safety Report 5409946-9 (Version None)
Quarter: 2007Q3

REPORT INFORMATION
  Report Type: 
  Country: None (occurrence: None)
  Receive Date: 20070807
  Receipt Date: 20070724
  Transmission Date: 20080115
  Serious: Yes (Other)
  Sender: FDA-Public Use
  Company Number: 2007S1000192

PATIENT
  Age: 73 Year
  Sex: Female
  Weight: 55.0213 kg

DRUGS (1)
  1. ACITRETIN [Suspect]
     Indication: PUSTULAR PSORIASIS
     Dosage: 10 MG; QD; PO
     Route: 048
     Dates: start: 20070227, end: 20070416

REACTIONS (1)
  - MACULAR DEGENERATION [None]
